FAERS Safety Report 8739814 (Version 2)
Quarter: 2012Q4

REPORT INFORMATION
  Report Type: 
  Country: US (occurrence: US)
  Receive Date: 20120823
  Receipt Date: 20120917
  Transmission Date: 20130627
  Serious: Yes (Death, Other)
  Sender: FDA-Public Use
  Company Number: US-CELGENEUS-163-21880-12082256

PATIENT
  Age: 85 Year
  Sex: Male

DRUGS (25)
  1. REVLIMID [Suspect]
     Indication: MDS
     Dosage: 5 Milligram
     Route: 048
     Dates: start: 20120608, end: 20120705
  2. LASIX [Concomitant]
     Indication: EDEMA
     Dosage: 50 Milligram
     Route: 065
  3. LASIX [Concomitant]
     Dosage: 60 Milligram
     Route: 065
  4. LASIX [Concomitant]
     Dosage: 40-60mg
     Route: 048
  5. COUMADIN [Concomitant]
     Indication: ATRIAL FIBRILLATION
     Route: 065
  6. BLOOD [Concomitant]
     Indication: BLOOD TRANSFUSION DEPENDENT
     Route: 041
  7. BLOOD [Concomitant]
     Dosage: 8 units
     Route: 041
     Dates: start: 201207
  8. DESFERAL [Concomitant]
     Indication: TRANSFUSION
     Route: 065
  9. IMDUR [Concomitant]
     Indication: HYPERTENSION
     Dosage: 30 Milligram
     Route: 048
  10. TYLENOL EXTRA STRENGTH [Concomitant]
     Indication: PAIN
     Dosage: 1000 Milligram
     Route: 048
  11. ASPIRIN [Concomitant]
     Indication: CEREBROVASCULAR ACCIDENT PROPHYLAXIS
     Dosage: 81 Milligram
     Route: 048
  12. CALCIUM 500/D [Concomitant]
     Indication: OSTEOPOROSIS
     Dosage: 500-200 mg
     Route: 048
  13. ZOCOR VS VYTORIN STUDY DRUG [Concomitant]
     Indication: BLOOD CHOLESTEROL ABNORMAL
     Route: 065
  14. SYNTHROID [Concomitant]
     Indication: THYROID DISORDER
     Dosage: 100 Microgram
     Route: 048
  15. MELATONIN [Concomitant]
     Indication: DIFFICULTY SLEEPING
     Dosage: 3 Milligram
     Route: 048
  16. TOPROL XL [Concomitant]
     Indication: ISCHEMIC HEART DISEASE
     Dosage: 50 Milligram
     Route: 048
  17. REMERON [Concomitant]
     Indication: DIFFICULTY SLEEPING
     Dosage: 15 Milligram
     Route: 048
  18. REMERON [Concomitant]
     Indication: APPETITE STIMULATED
  19. MULTIVITAMINS [Concomitant]
     Indication: DRUG USE FOR UNKNOWN INDICATION
     Dosage: 1 Tablespoon
     Route: 048
  20. NITROQUICK [Concomitant]
     Indication: CHEST PAIN
     Dosage: .4 Milligram
     Route: 060
  21. ROXICODONE INTENSOL [Concomitant]
     Indication: PAIN
     Route: 065
  22. KLOR-CON [Concomitant]
     Indication: DRUG USE FOR UNKNOWN INDICATION
     Dosage: 10 Milliequivalents
     Route: 048
  23. DESYREL [Concomitant]
     Indication: SLEEP DISORDER
     Dosage: 25mg-50mg
     Route: 065
  24. TYLENOL [Concomitant]
     Indication: PAIN
     Dosage: 500 Milligram
     Route: 048
  25. PACKED RED CELLS [Concomitant]
     Indication: DRUG USE FOR UNKNOWN INDICATION
     Route: 041
     Dates: start: 201206

REACTIONS (5)
  - Myelodysplastic syndrome [Fatal]
  - Cardiac disorder [Fatal]
  - Cardiac failure congestive [Unknown]
  - Renal failure acute [Unknown]
  - Infectious pleural effusion [Unknown]
